FAERS Safety Report 16639669 (Version 1)
Quarter: 2019Q3

REPORT INFORMATION
  Report Type: Spontaneous
  Country: US (occurrence: US)
  Receive Date: 20190727
  Receipt Date: 20190727
  Transmission Date: 20191004
  Serious: No
  Sender: FDA-Public Use
  Company Number: US-ZYDUS-037012

PATIENT
  Age: 70 Year
  Sex: Female

DRUGS (2)
  1. OMALIZUMAB. [Concomitant]
     Active Substance: OMALIZUMAB
     Indication: OEDEMA
     Route: 058
  2. CHOLESTYRAMINE. [Suspect]
     Active Substance: CHOLESTYRAMINE
     Indication: DUODENOGASTRIC REFLUX
     Route: 048
     Dates: start: 20190319, end: 20190408

REACTIONS (6)
  - Retching [Recovered/Resolved]
  - Dysphagia [Recovered/Resolved]
  - Product residue present [Recovered/Resolved]
  - Product use in unapproved indication [Recovered/Resolved]
  - Product solubility abnormal [Recovered/Resolved]
  - Product physical consistency issue [Recovered/Resolved]

NARRATIVE: CASE EVENT DATE: 20190319
